FAERS Safety Report 19360888 (Version 1)
Quarter: 2021Q2

REPORT INFORMATION
  Report Type: Spontaneous
  Country: US (occurrence: US)
  Receive Date: 20210601
  Receipt Date: 20210601
  Transmission Date: 20210717
  Serious: Yes (Hospitalization)
  Sender: FDA-Public Use
  Company Number: US-AMNEAL PHARMACEUTICALS-2021-AMRX-01844

PATIENT
  Age: 7 Month
  Sex: Female

DRUGS (3)
  1. VIGABATRIN. [Suspect]
     Active Substance: VIGABATRIN
     Indication: INFANTILE SPASMS
     Dosage: 500 MILLIGRAM, 2X/DAY
     Route: 048
     Dates: start: 202103
  2. VIGABATRIN. [Suspect]
     Active Substance: VIGABATRIN
     Dosage: 1300 MILLIGRAM, DAILY (600 MG IN MORNING AND 700 MG IN NIGHT)
     Route: 048
  3. VIGABATRIN. [Suspect]
     Active Substance: VIGABATRIN
     Dosage: 300 MILLIGRAM, 2X/DAY
     Route: 048

REACTIONS (3)
  - Pneumonia aspiration [Recovered/Resolved]
  - Seizure [Recovered/Resolved]
  - Toxicity to various agents [Recovered/Resolved]

NARRATIVE: CASE EVENT DATE: 202105
